FAERS Safety Report 6883253-X (Version None)
Quarter: 2010Q3

REPORT INFORMATION
  Report Type: 
  Country: None (occurrence: None)
  Receive Date: 20100727
  Receipt Date: 20070604
  Transmission Date: 20110219
  Serious: No
  Sender: FDA-Public Use
  Company Number: US-PFIZER INC-2007029063

PATIENT
  Sex: Female

DRUGS (4)
  1. CELEBREX [Suspect]
     Indication: RHEUMATOID ARTHRITIS
  2. METHOTREXATE [Concomitant]
  3. ULTRAM [Concomitant]
  4. ANTIHYPERTENSIVES [Concomitant]

REACTIONS (7)
  - ARTHRALGIA [None]
  - DRUG EFFECT DECREASED [None]
  - DYSPEPSIA [None]
  - GASTROOESOPHAGEAL REFLUX DISEASE [None]
  - MUSCULOSKELETAL STIFFNESS [None]
  - PAIN [None]
  - TREMOR [None]
